FAERS Safety Report 8840837 (Version 1)
Quarter: 2012Q4

REPORT INFORMATION
  Report Type: 
  Country: AR (occurrence: AR)
  Receive Date: 20121015
  Receipt Date: 20121015
  Transmission Date: 20130627
  Serious: Yes (Other)
  Sender: FDA-Public Use
  Company Number: PHHY2012AR090866

PATIENT
  Sex: Male

DRUGS (1)
  1. EXFORGE [Suspect]
     Dosage: 1 DF (160 mg vals and 5 mg amlo), daily
     Dates: start: 2010

REACTIONS (3)
  - Arterial occlusive disease [Unknown]
  - Convulsion [Unknown]
  - Brain hypoxia [Unknown]
